FAERS Safety Report 11925480 (Version 2)
Quarter: 2016Q4

REPORT INFORMATION
  Report Type: Spontaneous
  Country: DK (occurrence: DK)
  Receive Date: 20160118
  Receipt Date: 20161216
  Transmission Date: 20170206
  Serious: Yes (Hospitalization)
  Sender: FDA-Public Use
  Company Number: DK-009507513-1601DNK004544

PATIENT
  Sex: Female
  Weight: 82 kg

DRUGS (5)
  1. CALCIUM CITRATE (+) CHOLECALCIFEROL [Concomitant]
     Active Substance: CALCIUM CITRATE\CHOLECALCIFEROL
     Indication: OSTEOPOROSIS
     Dates: start: 200009
  2. DOLOL [Concomitant]
     Active Substance: TRAMADOL
     Indication: PAIN
     Dates: start: 200009
  3. DOLOL [Concomitant]
     Active Substance: TRAMADOL
     Indication: OSTEOPOROSIS
  4. FOSAMAX [Suspect]
     Active Substance: ALENDRONATE SODIUM
     Dosage: 70MG, QW
     Route: 048
     Dates: start: 200406, end: 201209
  5. PANODIL [Concomitant]
     Active Substance: ACETAMINOPHEN
     Indication: PAIN
     Dates: start: 200009

REACTIONS (12)
  - Pelvic fracture [Unknown]
  - Pathological fracture [Not Recovered/Not Resolved]
  - Ankle fracture [Unknown]
  - Femur fracture [Unknown]
  - Lumbar vertebral fracture [Unknown]
  - Jaw fracture [Unknown]
  - Mobility decreased [Unknown]
  - Rib fracture [Unknown]
  - Wrist fracture [Unknown]
  - Movement disorder [Unknown]
  - Lower limb fracture [Unknown]
  - Pain [Unknown]

NARRATIVE: CASE EVENT DATE: 2009
